FAERS Safety Report 22002682 (Version 1)
Quarter: 2023Q1

REPORT INFORMATION
  Report Type: Spontaneous
  Country: US (occurrence: US)
  Receive Date: 20230217
  Receipt Date: 20230217
  Transmission Date: 20230417
  Serious: Yes (Hospitalization, Other)
  Sender: FDA-Public Use
  Company Number: US-IBSA PHARMA INC.-2023IBS000095

PATIENT

DRUGS (1)
  1. TIROSINT-SOL [Suspect]
     Active Substance: LEVOTHYROXINE SODIUM
     Indication: Thyroid hormone replacement therapy
     Dosage: 75 MICROGRAM
     Route: 048
     Dates: start: 2022

REACTIONS (10)
  - Surgery [Unknown]
  - Blood thyroid stimulating hormone increased [Unknown]
  - Asthenia [Unknown]
  - Arrhythmia [Unknown]
  - Fatigue [Unknown]
  - Malaise [Unknown]
  - Feeling abnormal [Unknown]
  - Night sweats [Unknown]
  - Headache [Unknown]
  - Sleep disorder [Unknown]
